FAERS Safety Report 15089195 (Version 6)
Quarter: 2019Q3

REPORT INFORMATION
  Report Type: Report from Study
  Country: US (occurrence: US)
  Receive Date: 20180629
  Receipt Date: 20190723
  Transmission Date: 20191004
  Serious: No
  Sender: FDA-Public Use
  Company Number: PHHY2018US028538

PATIENT
  Age: 56 Year
  Sex: Female

DRUGS (1)
  1. GILENYA [Suspect]
     Active Substance: FINGOLIMOD HYDROCHLORIDE
     Indication: MULTIPLE SCLEROSIS
     Dosage: UNK, QD
     Route: 048

REACTIONS (7)
  - White blood cell count decreased [Unknown]
  - Hyperparathyroidism [Recovered/Resolved]
  - Essential hypertension [Not Recovered/Not Resolved]
  - Hepatic enzyme increased [Recovered/Resolved]
  - Lymphocyte count decreased [Unknown]
  - Insomnia [Not Recovered/Not Resolved]
  - Lentigo [Not Recovered/Not Resolved]

NARRATIVE: CASE EVENT DATE: 20171220
